FAERS Safety Report 8018245-0 (Version None)
Quarter: 2012Q1

REPORT INFORMATION
  Report Type: 
  Country: None (occurrence: None)
  Receive Date: 20120103
  Receipt Date: 20111229
  Transmission Date: 20120608
  Serious: Yes (Other)
  Sender: FDA-Public Use
  Company Number: US-BAYER-2011-099008

PATIENT
  Sex: Female
  Weight: 79.819 kg

DRUGS (4)
  1. MIRENA [Suspect]
     Dosage: UNK
     Dates: end: 20110829
  2. MIRENA [Suspect]
     Indication: CONTRACEPTION
     Dosage: 20 ?G, UNK
     Route: 015
     Dates: start: 20110829, end: 20111010
  3. MIRENA [Suspect]
     Dosage: UNK
     Dates: start: 20111209
  4. NUVARING [Concomitant]

REACTIONS (2)
  - UTERINE PERFORATION [None]
  - DEVICE DISLOCATION [None]
